FAERS Safety Report 7235116-8 (Version None)
Quarter: 2011Q1

REPORT INFORMATION
  Report Type: 
  Country: None (occurrence: None)
  Receive Date: 20110120
  Receipt Date: 20101203
  Transmission Date: 20110831
  Serious: Yes (Disabling)
  Sender: FDA-Public Use
  Company Number: US-SANOFI-AVENTIS-2010SA075247

PATIENT
  Age: 54 Year
  Sex: Female
  Weight: 118.18 kg

DRUGS (5)
  1. MULTAQ [Suspect]
     Indication: ATRIAL FIBRILLATION
     Route: 048
     Dates: start: 20100810, end: 20101208
  2. METOPROLOL SUCCINATE [Suspect]
     Indication: ATRIAL FIBRILLATION
     Route: 065
     Dates: start: 20100810, end: 20100901
  3. COUMADIN [Suspect]
     Indication: ATRIAL FIBRILLATION
     Route: 065
     Dates: start: 20100810, end: 20101201
  4. PRAVASTATIN [Suspect]
     Indication: ATRIAL FIBRILLATION
     Route: 065
     Dates: start: 20100810, end: 20100901
  5. SYNTHROID [Concomitant]

REACTIONS (4)
  - ABASIA [None]
  - DYSPNOEA [None]
  - ARTHRITIS [None]
  - SENSORY DISTURBANCE [None]
